FAERS Safety Report 24830270 (Version 1)
Quarter: 2025Q1

REPORT INFORMATION
  Report Type: Spontaneous
  Country: US (occurrence: US)
  Receive Date: 20250110
  Receipt Date: 20250110
  Transmission Date: 20250408
  Serious: Yes (Other)
  Sender: ACCORD
  Company Number: US-MLMSERVICE-20241226-PI325559-00295-1

PATIENT
  Age: 3 Decade
  Sex: Female

DRUGS (2)
  1. SERTRALINE [Suspect]
     Active Substance: SERTRALINE HYDROCHLORIDE
     Indication: Anxiety
  2. USTEKINUMAB [Concomitant]
     Active Substance: USTEKINUMAB
     Indication: Crohn^s disease

REACTIONS (1)
  - Colitis microscopic [Recovering/Resolving]
